FAERS Safety Report 17390363 (Version 1)
Quarter: 2020Q1

REPORT INFORMATION
  Report Type: Report from Study
  Country: DE (occurrence: DE)
  Receive Date: 20200207
  Receipt Date: 20200207
  Transmission Date: 20200409
  Serious: Yes (Hospitalization, Disabling, Other)
  Sender: FDA-Public Use
  Company Number: DE-BAUSCH-BL-2020-002992

PATIENT
  Age: 58 Year
  Sex: Male
  Weight: 87 kg

DRUGS (27)
  1. GILENYA [Suspect]
     Active Substance: FINGOLIMOD HYDROCHLORIDE
     Indication: MULTIPLE SCLEROSIS
  2. VOLON A [Concomitant]
     Route: 037
     Dates: start: 20180514
  3. MONO EMBOLEX [Concomitant]
     Active Substance: CERTOPARIN SODIUM
     Indication: PRODUCT USED FOR UNKNOWN INDICATION
     Dosage: 0.3 OT (OTIC SOLUTION), QD (0-0-1)
     Route: 058
  4. DEXAMETHASONE. [Suspect]
     Active Substance: DEXAMETHASONE
     Indication: MULTIPLE SCLEROSIS
  5. SIRDALUD [Suspect]
     Active Substance: TIZANIDINE
     Route: 065
  6. GILENYA [Suspect]
     Active Substance: FINGOLIMOD HYDROCHLORIDE
     Indication: SECONDARY PROGRESSIVE MULTIPLE SCLEROSIS
  7. TOREM [Concomitant]
     Active Substance: TORSEMIDE
     Indication: PRODUCT USED FOR UNKNOWN INDICATION
     Route: 065
  8. PANTOPRAZOL [Concomitant]
     Active Substance: PANTOPRAZOLE SODIUM
     Indication: PRODUCT USED FOR UNKNOWN INDICATION
     Dosage: 1 DF, QD (0-0-1)
     Route: 048
  9. DEXAMETHASONE. [Suspect]
     Active Substance: DEXAMETHASONE
     Indication: MOVEMENT DISORDER
     Dosage: 5 DF (40 MG)
     Route: 030
     Dates: start: 2019
  10. DEXAMETHASONE. [Suspect]
     Active Substance: DEXAMETHASONE
     Indication: GAIT DISTURBANCE
  11. FAMPRIDINE [Suspect]
     Active Substance: DALFAMPRIDINE
     Indication: PRODUCT USED FOR UNKNOWN INDICATION
     Route: 065
     Dates: end: 20180508
  12. VOLON A [Concomitant]
     Indication: ENCEPHALOMYELITIS
     Route: 037
     Dates: start: 20180508
  13. LIORESAL [Suspect]
     Active Substance: BACLOFEN
     Indication: PRODUCT USED FOR UNKNOWN INDICATION
     Dosage: 1 DF (10 MG), QID (6 AM-8 AM-1 PM-8 PM)
     Route: 065
  14. CLEXANE [Concomitant]
     Active Substance: ENOXAPARIN SODIUM
     Indication: PRODUCT USED FOR UNKNOWN INDICATION
     Dosage: 40 MG, QD (0-0-1)
     Route: 058
  15. FOLIC ACID. [Concomitant]
     Active Substance: FOLIC ACID
     Indication: PRODUCT USED FOR UNKNOWN INDICATION
     Route: 065
  16. DEXAMETHASONE. [Suspect]
     Active Substance: DEXAMETHASONE
     Indication: GAIT DISTURBANCE
     Route: 065
     Dates: start: 20170403, end: 20170407
  17. DEXAMETHASONE. [Suspect]
     Active Substance: DEXAMETHASONE
     Indication: MULTIPLE SCLEROSIS
  18. SIRDALUD [Suspect]
     Active Substance: TIZANIDINE
     Indication: PRODUCT USED FOR UNKNOWN INDICATION
     Route: 065
     Dates: end: 20180508
  19. FOLSAN [Suspect]
     Active Substance: FOLIC ACID
     Indication: PRODUCT USED FOR UNKNOWN INDICATION
     Route: 065
  20. OMEPRAZOLE. [Concomitant]
     Active Substance: OMEPRAZOLE
     Indication: PRODUCT USED FOR UNKNOWN INDICATION
     Route: 065
  21. VITAMIN B12 [Concomitant]
     Active Substance: CYANOCOBALAMIN
     Indication: PRODUCT USED FOR UNKNOWN INDICATION
     Dosage: 1 DF, QMO (ON SATURDAY)
     Route: 065
  22. LYRICA [Concomitant]
     Active Substance: PREGABALIN
     Indication: PRODUCT USED FOR UNKNOWN INDICATION
     Dosage: 25 MG, QN (EVERY NIGHT)
     Route: 065
  23. DEXAMETHASONE. [Suspect]
     Active Substance: DEXAMETHASONE
     Indication: MOVEMENT DISORDER
     Route: 065
     Dates: start: 20161212, end: 20161216
  24. DEKRISTOL [Concomitant]
     Active Substance: CHOLECALCIFEROL
     Indication: PRODUCT USED FOR UNKNOWN INDICATION
     Dosage: 1 DF, QW (ON SATURDAY)
     Route: 065
  25. METAMIZOLE [Suspect]
     Active Substance: METAMIZOLE
     Indication: PRODUCT USED FOR UNKNOWN INDICATION
     Route: 037
     Dates: start: 20180514, end: 20180514
  26. GILENYA [Suspect]
     Active Substance: FINGOLIMOD HYDROCHLORIDE
     Indication: RELAPSING-REMITTING MULTIPLE SCLEROSIS
     Route: 048
     Dates: start: 20141110
  27. PANTOZOL [Concomitant]
     Active Substance: PANTOPRAZOLE SODIUM
     Indication: PRODUCT USED FOR UNKNOWN INDICATION
     Route: 065

REACTIONS (76)
  - Paraparesis [Unknown]
  - Muscle spasticity [Recovering/Resolving]
  - Multiple sclerosis [Recovering/Resolving]
  - Wound [Unknown]
  - Neutrophil percentage increased [Unknown]
  - Red blood cells urine positive [Unknown]
  - Urine uric acid decreased [Unknown]
  - Blister [Unknown]
  - Dysdiadochokinesis [Recovering/Resolving]
  - Back pain [Unknown]
  - Balance disorder [Recovering/Resolving]
  - Gait disturbance [Recovering/Resolving]
  - Osteochondrosis [Unknown]
  - Motor dysfunction [Recovering/Resolving]
  - Vitamin B12 deficiency [Unknown]
  - Movement disorder [Recovered/Resolved]
  - Somatosensory evoked potentials abnormal [Unknown]
  - Urinary sediment abnormal [Unknown]
  - Monocyte percentage increased [Unknown]
  - Lymphocyte percentage decreased [Unknown]
  - Urinary tract infection [Unknown]
  - Toxicity to various agents [Unknown]
  - Adjustment disorder [Unknown]
  - Alanine aminotransferase increased [Unknown]
  - Urobilinogen urine increased [Unknown]
  - Dyspnoea [Recovered/Resolved]
  - Depressed mood [Unknown]
  - Protein urine present [Unknown]
  - Vitamin B6 deficiency [Unknown]
  - Sleep disorder [Unknown]
  - Intervertebral disc protrusion [Unknown]
  - Oedema peripheral [Unknown]
  - Wound haemorrhage [Unknown]
  - C-reactive protein increased [Unknown]
  - Fear of falling [Unknown]
  - Atrioventricular block first degree [Unknown]
  - Urinary incontinence [Unknown]
  - Movement disorder [Unknown]
  - Lipomatosis [Unknown]
  - Protein total decreased [Unknown]
  - Muscle strain [Unknown]
  - Mobility decreased [Unknown]
  - Lymphoedema [Unknown]
  - Hypoaesthesia [Unknown]
  - Blood pressure increased [Unknown]
  - Ataxia [Not Recovered/Not Resolved]
  - Fine motor skill dysfunction [Recovering/Resolving]
  - Blood glucose increased [Unknown]
  - Gait disturbance [Recovered/Resolved]
  - Arthralgia [Recovered/Resolved]
  - Movement disorder [Recovered/Resolved]
  - Paraplegia [Unknown]
  - Gamma-glutamyltransferase increased [Unknown]
  - Spinal cord injury cauda equina [Unknown]
  - Gait inability [Unknown]
  - Spinal osteoarthritis [Unknown]
  - Micturition disorder [Unknown]
  - Decreased vibratory sense [Recovering/Resolving]
  - Neutrophil count increased [Unknown]
  - Blood folate increased [Unknown]
  - Investigation abnormal [Unknown]
  - Disturbance in attention [Unknown]
  - Blood sodium increased [Unknown]
  - Blood alkaline phosphatase increased [Unknown]
  - Anal incontinence [Unknown]
  - Wrong product administered [Unknown]
  - Asthenia [Unknown]
  - Blood creatine phosphokinase increased [Unknown]
  - Renal cyst [Unknown]
  - Product use in unapproved indication [Unknown]
  - Lymphocyte count decreased [Unknown]
  - White blood cells urine positive [Unknown]
  - Cognitive disorder [Recovering/Resolving]
  - Dysarthria [Recovering/Resolving]
  - Anxiety disorder [Recovering/Resolving]
  - Drug ineffective [Unknown]

NARRATIVE: CASE EVENT DATE: 20150914
